FAERS Safety Report 19074349 (Version 1)
Quarter: 2021Q1

REPORT INFORMATION
  Report Type: Spontaneous
  Country: DE (occurrence: DE)
  Receive Date: 20210330
  Receipt Date: 20210330
  Transmission Date: 20210420
  Serious: Yes (Hospitalization)
  Sender: FDA-Public Use
  Company Number: DE-PFIZER INC-2021317185

PATIENT
  Age: 77 Year
  Sex: Male

DRUGS (14)
  1. TORASEMIDE [Concomitant]
     Active Substance: TORSEMIDE
     Dosage: 10 MG, 1X/DAY (1?0?0?0)
  2. LEVOTHYROXINE SODIUM. [Concomitant]
     Active Substance: LEVOTHYROXINE SODIUM
     Dosage: 75 UG, 1X/DAY (1?0?0?0)
  3. SYMBICORT [Concomitant]
     Active Substance: BUDESONIDE\FORMOTEROL FUMARATE DIHYDRATE
     Dosage: 1 DF, 2X/DAY (1?0?1?0)
     Route: 055
  4. ATORVASTATIN [Concomitant]
     Active Substance: ATORVASTATIN
     Dosage: 20 MG, 1X/DAY (0?0?1?0)
  5. ELIQUIS [Concomitant]
     Active Substance: APIXABAN
     Dosage: 2.5 MG, 2X/DAY (1?0?1?0)
  6. METOBETA [Concomitant]
     Active Substance: METOPROLOL TARTRATE
     Dosage: 50 MG, 2X/DAY (1?0?1?0)
  7. BRETARIS GENUAIR [Concomitant]
     Active Substance: ACLIDINIUM BROMIDE
     Dosage: 322 UG, 2X/DAY (1?0?1?0)
     Route: 055
  8. ESOMEPRAZOLE. [Concomitant]
     Active Substance: ESOMEPRAZOLE MAGNESIUM
     Dosage: 40 MG, 1X/DAY (1?0?0?0)
  9. LANTAREL [Suspect]
     Active Substance: METHOTREXATE SODIUM
     Dosage: 7.5 MG, WEEKLY (ON THURSDAYS)
  10. FOLSAEURE [Concomitant]
     Active Substance: FOLIC ACID
     Dosage: 5 MG, WEEKLY (ON FRIDAYS)
  11. PREDNISOLONE. [Suspect]
     Active Substance: PREDNISOLONE
     Dosage: 0.5 DF, 1X/DAY(0.5?0?0?0)
  12. CALCIUM [Concomitant]
     Active Substance: CALCIUM
     Dosage: 500 MG, 1X/DAY (1?0?0?0)
  13. DEKRISTOL [Concomitant]
     Active Substance: CHOLECALCIFEROL
     Dosage: 20000 IU, WEEKLY
  14. METAMIZOLE [Concomitant]
     Active Substance: METAMIZOLE
     Dosage: 2 DF, 4X/DAY (2?2?2?2)

REACTIONS (6)
  - Decreased appetite [Unknown]
  - Product prescribing error [Unknown]
  - Anaemia [Unknown]
  - Weight decreased [Unknown]
  - Vomiting [Unknown]
  - Nausea [Unknown]
